FAERS Safety Report 4897683-9 (Version None)
Quarter: 2006Q1

REPORT INFORMATION
  Report Type: 
  Country: None (occurrence: None)
  Receive Date: 20060130
  Receipt Date: 20060130
  Transmission Date: 20060701
  Serious: No
  Sender: FDA-Public Use
  Company Number: None

PATIENT
  Age: 55 Year
  Sex: Male
  Weight: 83.9154 kg

DRUGS (2)
  1. ZICAM COLD REMEDY [Suspect]
     Indication: NASAL CONGESTION
     Dosage: AS DIRECTED AS DIRECTED NASAL
     Route: 045
     Dates: start: 20050122, end: 20050122
  2. ZICAM COLD REMEDY [Suspect]
     Indication: NASOPHARYNGITIS
     Dosage: AS DIRECTED AS DIRECTED NASAL
     Route: 045
     Dates: start: 20050122, end: 20050122

REACTIONS (2)
  - ANOSMIA [None]
  - BURNING SENSATION [None]
